FAERS Safety Report 13868295 (Version 1)
Quarter: 2017Q3

REPORT INFORMATION
  Report Type: Spontaneous
  Country: RU (occurrence: RU)
  Receive Date: 20170815
  Receipt Date: 20170815
  Transmission Date: 20171127
  Serious: Yes (Hospitalization, Other)
  Sender: FDA-Public Use
  Company Number: RU-ASTRAZENECA-2017SE80915

PATIENT
  Age: 61 Year
  Sex: Female
  Weight: 58 kg

DRUGS (8)
  1. ALPAZ [Concomitant]
     Active Substance: ALPRAZOLAM
  2. ISOSORBIDE MONONITRATE. [Concomitant]
     Active Substance: ISOSORBIDE MONONITRATE
  3. DIUVER [Concomitant]
     Active Substance: TORSEMIDE
  4. CONCOR [Concomitant]
     Active Substance: BISOPROLOL FUMARATE
  5. CORAXAN [Concomitant]
     Active Substance: IVABRADINE HYDROCHLORIDE
  6. BRILINTA [Suspect]
     Active Substance: TICAGRELOR
     Indication: MYOCARDIAL INFARCTION
     Route: 048
     Dates: start: 201610
  7. LOSARTAN. [Concomitant]
     Active Substance: LOSARTAN
  8. VEROSPIRON [Concomitant]
     Active Substance: SPIRONOLACTONE

REACTIONS (2)
  - Blood pressure decreased [Recovered/Resolved]
  - Blood pressure increased [Recovered/Resolved]

NARRATIVE: CASE EVENT DATE: 201702
